FAERS Safety Report 6032082-8 (Version None)
Quarter: 2009Q1

REPORT INFORMATION
  Report Type: 
  Country: None (occurrence: None)
  Receive Date: 20090108
  Receipt Date: 20081230
  Transmission Date: 20090719
  Serious: Yes (Life-Threatening, Hospitalization, Other)
  Sender: FDA-Public Use
  Company Number: FR-ABBOTT-08P-056-0488733-00

PATIENT
  Sex: Female
  Weight: 70 kg

DRUGS (7)
  1. HUMIRA [Suspect]
     Indication: CROHN'S DISEASE
     Dosage: 80 MG THEN 40 MG EVERY 2 WEEKS
     Route: 058
     Dates: start: 20080620, end: 20081020
  2. HUMIRA [Suspect]
  3. BETA-BLOCKER (NOS) [Concomitant]
     Indication: PERICARDITIS
  4. BETA-BLOCKER (NOS) [Concomitant]
     Indication: MYOCARDITIS
  5. AZATHIOPRINE [Concomitant]
     Indication: CROHN'S DISEASE
     Route: 048
     Dates: start: 19960101
  6. ACEBUTOLOL [Concomitant]
     Indication: DRUG USE FOR UNKNOWN INDICATION
     Route: 048
     Dates: start: 20050401
  7. NOMEGESTROL [Concomitant]
     Indication: DRUG USE FOR UNKNOWN INDICATION
     Route: 048

REACTIONS (4)
  - CARDIAC ARREST [None]
  - MALAISE [None]
  - MYOCARDIAL INFARCTION [None]
  - MYOCARDITIS [None]
